FAERS Safety Report 16169500 (Version 1)
Quarter: 2019Q2

REPORT INFORMATION
  Report Type: Spontaneous
  Country: US (occurrence: US)
  Receive Date: 20190406
  Receipt Date: 20190406
  Transmission Date: 20190711
  Serious: Yes (Other)
  Sender: FDA-Public Use
  Company Number: None

PATIENT
  Age: 35 Year
  Sex: Male
  Weight: 83.7 kg

DRUGS (1)
  1. FLUCONAZOLE TABLET [Suspect]
     Active Substance: FLUCONAZOLE
     Indication: FUNGAL INFECTION
     Dosage: ?          QUANTITY:1 TABLET(S);OTHER FREQUENCY:1 PO;?
     Route: 048
     Dates: start: 20190323, end: 20190326

REACTIONS (5)
  - Rash [None]
  - Paraesthesia [None]
  - Pruritus [None]
  - Pyrexia [None]
  - Herpes zoster [None]

NARRATIVE: CASE EVENT DATE: 20190326
